FAERS Safety Report 5165721-4 (Version None)
Quarter: 2006Q4

REPORT INFORMATION
  Report Type: 
  Country: None (occurrence: None)
  Receive Date: 20061128
  Receipt Date: 20061115
  Transmission Date: 20070319
  Serious: Yes (Other)
  Sender: FDA-Public Use
  Company Number: 200611AGG00513

PATIENT
  Age: 85 Year
  Sex: Female

DRUGS (3)
  1. AGGRASTAT [Suspect]
     Indication: PROPHYLAXIS
     Dosage: IV (ICH 042)
     Route: 042
     Dates: start: 20060325, end: 20060301
  2. ASPIRIN [Concomitant]
  3. HEPARIN LOW MOLECULAR WEIGHT [Concomitant]

REACTIONS (2)
  - CORONARY ARTERY STENOSIS [None]
  - MYOCARDIAL INFARCTION [None]
